FAERS Safety Report 12101343 (Version 2)
Quarter: 2016Q1

REPORT INFORMATION
  Report Type: Spontaneous
  Country: AR (occurrence: AR)
  Receive Date: 20160222
  Receipt Date: 20160307
  Transmission Date: 20160526
  Serious: Yes (Other)
  Sender: FDA-Public Use
  Company Number: AR-SA-2016SA029868

PATIENT
  Age: 73 Year
  Sex: Female

DRUGS (1)
  1. TRENTAL [Suspect]
     Active Substance: PENTOXIFYLLINE
     Route: 065

REACTIONS (2)
  - Urinary retention [Recovered/Resolved]
  - Colitis [Recovered/Resolved]
